FAERS Safety Report 21191474 (Version 1)
Quarter: 2022Q3

REPORT INFORMATION
  Report Type: Spontaneous
  Country: CN (occurrence: CN)
  Receive Date: 20220809
  Receipt Date: 20220809
  Transmission Date: 20221027
  Serious: Yes (Other)
  Sender: FDA-Public Use
  Company Number: None

PATIENT
  Age: 40 Year
  Sex: Female
  Weight: 46.5 kg

DRUGS (4)
  1. CYCLOPHOSPHAMIDE [Suspect]
     Active Substance: CYCLOPHOSPHAMIDE
     Indication: Lung neoplasm malignant
     Dosage: 1ST CYCLE, 0.8 G ONCE DAILY, DILUTED WITH 100 0.9% SODIUM CHLORIDE INJECTION
     Route: 041
     Dates: start: 20220627, end: 20220627
  2. SODIUM CHLORIDE [Suspect]
     Active Substance: SODIUM CHLORIDE
     Indication: Medication dilution
     Dosage: 1ST CYCLE, 100 ML. ONCE A DAILY , DILUTED IN 0.8 G, CYCLOPHOSPHAMIDE INJECTION
     Route: 041
     Dates: start: 20220627, end: 20220627
  3. SODIUM CHLORIDE [Suspect]
     Active Substance: SODIUM CHLORIDE
     Dosage: 1ST CYCLE, 100 ML, ONCE A DAILY, DILUTED IN 140 MG EPIRUBICIN HYDROCHLOTRIDE INJECTION
     Route: 041
     Dates: start: 20220627, end: 20220628
  4. EPIRUBICIN HYDROCHLORIDE [Suspect]
     Active Substance: EPIRUBICIN HYDROCHLORIDE
     Indication: Lung neoplasm malignant
     Dosage: 1ST CYCLE, 140 MG ONCE DAILY, DILUTED WITH 100 ML OF 0.9% SODIUM CHLORIDE INJECTION
     Route: 041
     Dates: start: 20220627, end: 20220628

REACTIONS (4)
  - Myelosuppression [Recovering/Resolving]
  - Pyrexia [Recovered/Resolved]
  - Mental fatigue [Unknown]
  - Asthenia [Unknown]

NARRATIVE: CASE EVENT DATE: 20220701
